FAERS Safety Report 6306140-4 (Version None)
Quarter: 2009Q3

REPORT INFORMATION
  Report Type: 
  Country: None (occurrence: None)
  Receive Date: 20090810
  Receipt Date: 20090729
  Transmission Date: 20100115
  Serious: Yes (Death)
  Sender: FDA-Public Use
  Company Number: 2009AL003197

PATIENT
  Age: 68 Year
  Sex: Male

DRUGS (14)
  1. DIGOXIN [Suspect]
     Dosage: 0.1125MG, DAILY, PO
     Route: 048
     Dates: start: 20080209
  2. LOPRESSOR [Concomitant]
  3. PROCRIT [Concomitant]
  4. MINITRAN [Concomitant]
  5. CALCITRIOL [Concomitant]
  6. SODIUM BICARBONATE [Concomitant]
  7. PREVACID [Concomitant]
  8. LIPITOR [Concomitant]
  9. PROCRIT [Concomitant]
  10. ASPIRIN [Concomitant]
  11. ZIVOX [Concomitant]
  12. LEVAQUIN [Concomitant]
  13. LASIX [Concomitant]
  14. CARDIZEM [Concomitant]

REACTIONS (8)
  - DIALYSIS [None]
  - DIARRHOEA [None]
  - ECONOMIC PROBLEM [None]
  - ILL-DEFINED DISORDER [None]
  - MULTIPLE INJURIES [None]
  - PLEURAL EFFUSION [None]
  - RENAL FAILURE [None]
  - THERAPEUTIC AGENT TOXICITY [None]
